FAERS Safety Report 9096293 (Version 1)
Quarter: 2013Q1

REPORT INFORMATION
  Report Type: Spontaneous
  Country: IT (occurrence: IT)
  Receive Date: 20130207
  Receipt Date: 20130207
  Transmission Date: 20140127
  Serious: Yes (Hospitalization)
  Sender: FDA-Public Use
  Company Number: IT-FRI-1000042388

PATIENT
  Age: 1 Day
  Sex: Male

DRUGS (3)
  1. NEBIVOLOL [Suspect]
     Dosage: 5 MG
     Route: 064
     Dates: start: 20120701, end: 20121024
  2. FOLIC ACID [Concomitant]
     Route: 064
  3. FERROUS GLUCONATE [Concomitant]
     Route: 064

REACTIONS (5)
  - Foetal exposure during pregnancy [Recovered/Resolved]
  - Hypoglycaemia [Unknown]
  - Hyponatraemia [Unknown]
  - Jaundice [Unknown]
  - Polycythaemia [Unknown]
